FAERS Safety Report 19136622 (Version 1)
Quarter: 2021Q2

REPORT INFORMATION
  Report Type: Spontaneous
  Country: US (occurrence: US)
  Receive Date: 20210415
  Receipt Date: 20210415
  Transmission Date: 20210717
  Serious: Yes (Other)
  Sender: FDA-Public Use
  Company Number: US-AMGEN-USASP2021053597

PATIENT
  Sex: Female

DRUGS (2)
  1. CARBOPLATIN;PACLITAXEL [Concomitant]
     Active Substance: CARBOPLATIN\PACLITAXEL
     Dosage: UNK UNK, QWK
  2. MVASI [Suspect]
     Active Substance: BEVACIZUMAB-AWWB
     Indication: NON-SMALL CELL LUNG CANCER
     Dosage: UNK, QWK
     Route: 065

REACTIONS (2)
  - Lymphadenopathy [Unknown]
  - Retinal detachment [Unknown]
